FAERS Safety Report 9777539 (Version 1)
Quarter: 2013Q4

REPORT INFORMATION
  Report Type: Spontaneous
  Country: US (occurrence: US)
  Receive Date: 20131222
  Receipt Date: 20131222
  Transmission Date: 20140711
  Serious: No
  Sender: FDA-Public Use
  Company Number: US-009507513-1312USA009300

PATIENT
  Age: 60 Year
  Sex: Female

DRUGS (5)
  1. PRINIVIL [Suspect]
     Indication: BLOOD PRESSURE
     Dosage: 20 MG, UNK
     Route: 048
     Dates: start: 2010
  2. PRINIVIL [Suspect]
     Dosage: 10 MG, QD
     Route: 048
     Dates: end: 201311
  3. NASONEX [Suspect]
     Dosage: UNK
  4. PULMICORT [Concomitant]
     Dosage: UNK
  5. CODEINE [Concomitant]
     Dosage: UNK

REACTIONS (2)
  - Hypotension [Unknown]
  - Cough [Not Recovered/Not Resolved]
